FAERS Safety Report 11277563 (Version 1)
Quarter: 2015Q3

REPORT INFORMATION
  Report Type: Spontaneous
  Country: US (occurrence: US)
  Receive Date: 20150716
  Receipt Date: 20150716
  Transmission Date: 20151125
  Serious: Yes (Other)
  Sender: FDA-Public Use
  Company Number: US-BAXTER-2015BAX037973

PATIENT
  Sex: Male
  Weight: 70 kg

DRUGS (4)
  1. ASPIRIN. [Concomitant]
     Active Substance: ASPIRIN
     Indication: PREOPERATIVE CARE
     Route: 065
  2. LIDOCAINE HYDROCHLORIDE AND 5% DEXTROSE INJECTION, USP [Suspect]
     Active Substance: LIDOCAINE HYDROCHLORIDE
     Indication: PRODUCT USED FOR UNKNOWN INDICATION
     Dosage: SPIKED WITH 500 ML BAG WITH 4 GRAM OF LIDOCAINE HYDROCHLORIDE (8MG/ML)
     Route: 042
  3. LIDOCAINE HYDROCHLORIDE AND 5% DEXTROSE INJECTION, USP [Suspect]
     Active Substance: LIDOCAINE HYDROCHLORIDE
     Indication: VENTRICULAR EXTRASYSTOLES
     Dosage: AN ADDITIONAL 100 MG WAS GIVEN NEAR THE SEPARATION FROM CPB FOR FREQUENT VENTRICULAR ECTOPY
     Route: 042
  4. LIDOCAINE HYDROCHLORIDE AND 5% DEXTROSE INJECTION, USP [Suspect]
     Active Substance: LIDOCAINE HYDROCHLORIDE
     Dosage: SPIKED WITH 500 ML BAG WITH 4 GRAM OF LIDOCAINE HYDROCHLORIDE (8MG/ML)
     Route: 042

REACTIONS (3)
  - Cardiac arrest [Recovered/Resolved]
  - Accidental overdose [Recovered/Resolved]
  - Wrong drug administered [Recovered/Resolved]
